FAERS Safety Report 20655942 (Version 2)
Quarter: 2022Q2

REPORT INFORMATION
  Report Type: Spontaneous
  Country: CH (occurrence: None)
  Receive Date: 20220330
  Receipt Date: 20220420
  Transmission Date: 20220721
  Serious: Yes (Hospitalization, Other)
  Sender: FDA-Public Use
  Company Number: CH-ROCHE-3059290

PATIENT
  Sex: Female

DRUGS (1)
  1. ALECENSA [Suspect]
     Active Substance: ALECTINIB HYDROCHLORIDE
     Indication: Non-small cell lung cancer
     Dosage: RECEIVING ALECENSA SINCE 02-OCT-2017? DOSING WAS 4 CAPSULES AT A DOSE OF 150 MG IN THE MORNING AND I
     Route: 065

REACTIONS (6)
  - COVID-19 [Unknown]
  - Renal failure [Unknown]
  - Intra-abdominal haemorrhage [Unknown]
  - Haemoglobin decreased [Unknown]
  - Abdominal pain lower [Unknown]
  - Somnolence [Unknown]
